FAERS Safety Report 17251639 (Version 1)
Quarter: 2020Q1

REPORT INFORMATION
  Report Type: Spontaneous
  Country: DE (occurrence: DE)
  Receive Date: 20200109
  Receipt Date: 20200109
  Transmission Date: 20200409
  Serious: Yes (Hospitalization, Other)
  Sender: FDA-Public Use
  Company Number: DE-PFIZER INC-2020006481

PATIENT
  Age: 98 Year
  Sex: Female

DRUGS (13)
  1. ERYFER (FERROUS SULFATE) [Suspect]
     Active Substance: FERROUS SULFATE
     Dosage: 100 MG, 1X/DAY(1-0-0-0)
  2. KALIUM [POTASSIUM] [Concomitant]
     Dosage: 1 DF, ALTERNATE DAY (UNKNOWN MG/2DAYS, 1-0-0-0 )
  3. MELPERON [Suspect]
     Active Substance: MELPERONE
     Dosage: 5 ML, AS NEEDED
  4. SALBUTAMOL AL [Concomitant]
     Dosage: UNK, AS NEEDED
  5. METOPROLOL. [Concomitant]
     Active Substance: METOPROLOL
     Dosage: 71.25 MG, 1X/DAY (47.5 MG, 1-0-0.5-0)
  6. MIRTAZAPIN [Concomitant]
     Active Substance: MIRTAZAPINE
     Dosage: 15 MG, 1X/DAY (15 MG, 0-0-1-0)
  7. PANTOZOLE [Concomitant]
     Active Substance: PANTOPRAZOLE SODIUM
     Dosage: 40 MG, 1X/DAY (40 MG, 1-0-0-0)
  8. PREGABALIN. [Suspect]
     Active Substance: PREGABALIN
     Dosage: 25 MG, 1X/DAY(0-0-1-0)
  9. ACC [ACETYLCYSTEINE] [Concomitant]
     Active Substance: ACETYLCYSTEINE
     Dosage: 600 MG, 1X/DAY (600 MG, 1-0-0-0)
  10. ALLOPURINOL. [Concomitant]
     Active Substance: ALLOPURINOL
     Dosage: 100 MG, 1X/DAY (100 MG, 1-0-0-0)
  11. RIVAROXABAN [Suspect]
     Active Substance: RIVAROXABAN
     Dosage: 10 MG, 1X/DAY(1-0-0-0)
  12. XIPAMID [Suspect]
     Active Substance: XIPAMIDE
     Dosage: 10 MG, 1X/DAY (10 MG, 1-0-0-0)
  13. TORASEMID [Suspect]
     Active Substance: TORSEMIDE
     Dosage: 10 MG, 1X/DAY (1-0-0-0)

REACTIONS (5)
  - Glomerular filtration rate decreased [Unknown]
  - Eructation [Unknown]
  - Constipation [Unknown]
  - Flatulence [Unknown]
  - Abdominal distension [Unknown]

NARRATIVE: CASE EVENT DATE: 20191023
